FAERS Safety Report 26130257 (Version 1)
Quarter: 2025Q4

REPORT INFORMATION
  Report Type: Spontaneous
  Country: US (occurrence: US)
  Receive Date: 20251208
  Receipt Date: 20251208
  Transmission Date: 20260118
  Serious: Yes (Hospitalization)
  Sender: BIOCRYST PHARMACEUTICALS
  Company Number: US-BIOCRYST PHARMACEUTICALS, INC.-2025BCR01600

PATIENT
  Age: 46 Year

DRUGS (1)
  1. ORLADEYO [Suspect]
     Active Substance: BEROTRALSTAT HYDROCHLORIDE
     Indication: Hereditary angioedema
     Dosage: 150 MG, QD

REACTIONS (7)
  - Hereditary angioedema [Recovered/Resolved]
  - Autism spectrum disorder [Unknown]
  - Attention deficit hyperactivity disorder [Unknown]
  - Tremor [Unknown]
  - Abdominal pain upper [Unknown]
  - Product dose omission issue [Recovered/Resolved]
  - Product distribution issue [Recovered/Resolved]
